FAERS Safety Report 4380384-3 (Version None)
Quarter: 2004Q2

REPORT INFORMATION
  Report Type: 
  Country: None (occurrence: None)
  Receive Date: 20040614
  Receipt Date: 20040607
  Transmission Date: 20050107
  Serious: Yes (Life-Threatening)
  Sender: FDA-Public Use
  Company Number: J081-002-001672

PATIENT
  Age: 85 Year
  Sex: Female

DRUGS (6)
  1. ARICEPT [Suspect]
     Indication: DEMENTIA ALZHEIMER'S TYPE
     Dosage: 5 MG, 1 IN 1 D, ORAL
     Route: 048
     Dates: start: 20030514, end: 20040506
  2. ASPENON (APRINDINE HYDROCHLORIDE) [Concomitant]
  3. NITROL [Concomitant]
  4. TOWAZUREN (GLORIAMIN) [Concomitant]
  5. ALOSENN (ALOSENN) [Concomitant]
  6. ELCITONIN (ELCATONIN) [Concomitant]

REACTIONS (2)
  - LOSS OF CONSCIOUSNESS [None]
  - VENTRICULAR FIBRILLATION [None]
